FAERS Safety Report 11057151 (Version 2)
Quarter: 2015Q2

REPORT INFORMATION
  Report Type: Spontaneous
  Country: US (occurrence: US)
  Receive Date: 20150422
  Receipt Date: 20150601
  Transmission Date: 20150821
  Serious: No
  Sender: FDA-Public Use
  Company Number: US-PFIZER INC-2015132863

PATIENT
  Age: 32 Year
  Sex: Female
  Weight: 55 kg

DRUGS (5)
  1. LYRICA [Suspect]
     Active Substance: PREGABALIN
     Dosage: 150 MG, 2X/DAY
     Route: 048
     Dates: start: 2014
  2. PRENATAL VITAMINS /02014401/ [Concomitant]
     Active Substance: VITAMINS
  3. TYLENOL [Concomitant]
     Active Substance: ACETAMINOPHEN
  4. PERCOCET [Concomitant]
     Active Substance: ACETAMINOPHEN\OXYCODONE HYDROCHLORIDE
     Indication: PAIN
     Dosage: 5/325MG AS NEEDED
  5. LYRICA [Suspect]
     Active Substance: PREGABALIN
     Indication: NEURALGIA
     Dosage: 75 MG, UNK
     Route: 048
     Dates: start: 2014

REACTIONS (2)
  - Drug effect incomplete [Not Recovered/Not Resolved]
  - Musculoskeletal pain [Not Recovered/Not Resolved]
